FAERS Safety Report 8609605-5 (Version None)
Quarter: 2012Q3

REPORT INFORMATION
  Report Type: 
  Country: None (occurrence: None)
  Receive Date: 20120810
  Receipt Date: 20120810
  Transmission Date: 20120928
  Serious: No
  Sender: FDA-Public Use
  Company Number: None

PATIENT
  Age: 41 Year
  Sex: Female

DRUGS (1)
  1. MIRENA [Suspect]

REACTIONS (7)
  - PAIN [None]
  - MENSTRUATION IRREGULAR [None]
  - MIGRAINE [None]
  - BACK PAIN [None]
  - BREAST SWELLING [None]
  - MALAISE [None]
  - ABDOMINAL DISTENSION [None]
